FAERS Safety Report 17770417 (Version 2)
Quarter: 2020Q2

REPORT INFORMATION
  Report Type: Spontaneous
  Country: CN (occurrence: CN)
  Receive Date: 20200512
  Receipt Date: 20200520
  Transmission Date: 20200714
  Serious: Yes (Death, Other)
  Sender: FDA-Public Use
  Company Number: CN-ASTRAZENECA-2020SE62444

PATIENT
  Age: 47 Year
  Sex: Male

DRUGS (3)
  1. TAGRISSO [Suspect]
     Active Substance: OSIMERTINIB
     Indication: METASTASES TO SPINE
     Route: 048
  2. TAGRISSO [Suspect]
     Active Substance: OSIMERTINIB
     Indication: NON-SMALL CELL LUNG CANCER
     Route: 048
  3. TAGRISSO [Suspect]
     Active Substance: OSIMERTINIB
     Indication: METASTASES TO CENTRAL NERVOUS SYSTEM
     Route: 048

REACTIONS (1)
  - Cardiotoxicity [Unknown]
